FAERS Safety Report 8318472 (Version 5)
Quarter: 2013Q1

REPORT INFORMATION
  Report Type: Report from Study
  Country: JP (occurrence: JP)
  Receive Date: 20120103
  Receipt Date: 20130118
  Transmission Date: 20140127
  Serious: Yes (Other)
  Sender: FDA-Public Use
  Company Number: JP-BRISTOL-MYERS SQUIBB COMPANY-16319766

PATIENT
  Age: 55 Year
  Sex: Male

DRUGS (9)
  1. METGLUCO [Suspect]
     Indication: TYPE 2 DIABETES MELLITUS
     Route: 048
     Dates: start: 20110830
  2. ETHYL ICOSAPENTATE [Concomitant]
     Route: 048
     Dates: start: 20110730
  3. ALLOPURINOL [Concomitant]
     Route: 048
     Dates: start: 20100828
  4. DABIGATRAN ETEXILATE [Concomitant]
     Dosage: 4 CAPS/DAY?FROM 28SEP11-300MG
  5. LUPRAC [Concomitant]
     Route: 048
     Dates: start: 20110928
  6. LIVALO [Concomitant]
     Route: 048
     Dates: start: 20110928
  7. LANIRAPID [Concomitant]
     Route: 048
     Dates: start: 20111008, end: 20111111
  8. PILSICAINIDE HCL [Concomitant]
     Route: 048
     Dates: start: 20111022, end: 20111111
  9. PIOGLITAZONE HCL [Concomitant]

REACTIONS (4)
  - Atrial fibrillation [Recovered/Resolved]
  - Cardiac failure [Recovered/Resolved]
  - Blood lactic acid increased [Unknown]
  - Diabetes mellitus [Not Recovered/Not Resolved]
